FAERS Safety Report 5828981-X (Version None)
Quarter: 2008Q3

REPORT INFORMATION
  Report Type: 
  Country: None (occurrence: None)
  Receive Date: 20080731
  Receipt Date: 20080722
  Transmission Date: 20090109
  Serious: Yes (Other)
  Sender: FDA-Public Use
  Company Number: PHHY2008JP13627

PATIENT

DRUGS (3)
  1. COMTAN [Suspect]
     Indication: PARKINSONISM
     Dosage: 300 MG, TID
     Route: 048
  2. SELEGILINE HCL [Suspect]
     Indication: PARKINSONISM
     Route: 065
  3. LEVODOPA [Concomitant]
     Indication: PARKINSONISM
     Route: 065

REACTIONS (2)
  - DELUSION [None]
  - HALLUCINATION, VISUAL [None]
